FAERS Safety Report 4504010-5 (Version None)
Quarter: 2004Q3

REPORT INFORMATION
  Report Type: 
  Country: None (occurrence: None)
  Receive Date: 20040927
  Receipt Date: 20040706
  Transmission Date: 20050211
  Serious: No
  Sender: FDA-Public Use
  Company Number: USA040771925

PATIENT
  Age: 13 Year
  Sex: Female

DRUGS (1)
  1. STRATTERA [Suspect]
     Dates: start: 20040501

REACTIONS (1)
  - WEIGHT INCREASED [None]
